FAERS Safety Report 20771467 (Version 1)
Quarter: 2022Q2

REPORT INFORMATION
  Report Type: Spontaneous
  Country: IL (occurrence: IL)
  Receive Date: 20220429
  Receipt Date: 20220429
  Transmission Date: 20220721
  Serious: Yes (Hospitalization)
  Sender: FDA-Public Use
  Company Number: IL-STRIDES ARCOLAB LIMITED-2022SP004724

PATIENT
  Age: 41 Year
  Sex: Female

DRUGS (7)
  1. PREDNISOLONE [Suspect]
     Active Substance: PREDNISOLONE
     Indication: Non-Hodgkin^s lymphoma
     Dosage: UNK, ALSO ADMINISTERED UNDER THE EPOCH-RX CHEMOTHERAPY PROTOCOL
     Route: 065
  2. ETOPOSIDE [Suspect]
     Active Substance: ETOPOSIDE
     Indication: Non-Hodgkin^s lymphoma
     Dosage: UNK, ADMINISTERED UNDER THE EPOCH-RX CHEMOTHERAPY PROTOCOL
     Route: 065
  3. DOXORUBICIN [Suspect]
     Active Substance: DOXORUBICIN
     Indication: Non-Hodgkin^s lymphoma
     Dosage: UNK, ADMINISTERED UNDER THE EPOCH-RX CHEMOTHERAPY PROTOCOL
     Route: 065
  4. VINCRISTINE [Suspect]
     Active Substance: VINCRISTINE
     Indication: Non-Hodgkin^s lymphoma
     Dosage: UNK, ADMINISTERED UNDER THE EPOCH-RX CHEMOTHERAPY PROTOCOL
     Route: 065
  5. CYCLOPHOSPHAMIDE [Suspect]
     Active Substance: CYCLOPHOSPHAMIDE
     Indication: Non-Hodgkin^s lymphoma
     Dosage: UNK, ALSO ADMINISTERED UNDER THE EPOCH-RX CHEMOTHERAPY PROTOCOL
     Route: 065
  6. CYCLOPHOSPHAMIDE [Suspect]
     Active Substance: CYCLOPHOSPHAMIDE
     Indication: Acute myeloid leukaemia
     Dosage: UNK
     Route: 065
  7. RITUXIMAB [Suspect]
     Active Substance: RITUXIMAB
     Indication: Non-Hodgkin^s lymphoma
     Dosage: UNK, ADMINISTERED UNDER THE EPOCH-RX CHEMOTHERAPY PROTOCOL
     Route: 065

REACTIONS (3)
  - Acute myeloid leukaemia [Unknown]
  - Alopecia [Recovered/Resolved]
  - Off label use [Unknown]
